FAERS Safety Report 7374910-X (Version None)
Quarter: 2011Q1

REPORT INFORMATION
  Report Type: 
  Country: None (occurrence: None)
  Receive Date: 20110325
  Receipt Date: 20110316
  Transmission Date: 20110831
  Serious: Yes (Hospitalization, Other)
  Sender: FDA-Public Use
  Company Number: US-NOVOPROD-325131

PATIENT
  Age: 56 Year
  Sex: Female
  Weight: 64.853 kg

DRUGS (1)
  1. VICTOZA [Suspect]
     Indication: TYPE 2 DIABETES MELLITUS
     Dosage: 1.8 MG, QD
     Route: 058
     Dates: start: 20100101

REACTIONS (3)
  - DIABETES MELLITUS INADEQUATE CONTROL [None]
  - CARDIAC DISORDER [None]
  - INJECTION SITE REACTION [None]
